FAERS Safety Report 4360858-1 (Version None)
Quarter: 2004Q2

REPORT INFORMATION
  Report Type: 
  Country: None (occurrence: None)
  Receive Date: 20040520
  Receipt Date: 20040514
  Transmission Date: 20050107
  Serious: Yes (Other)
  Sender: FDA-Public Use
  Company Number: GB-JNJFOC-20040406494

PATIENT
  Age: 50 Year
  Sex: Male

DRUGS (3)
  1. RETEPLASE [Suspect]
     Indication: MYOCARDIAL INFARCTION
     Route: 042
  2. STREPTASE [Concomitant]
     Indication: DRUG USE FOR UNKNOWN INDICATION
  3. ATENOLOL [Concomitant]

REACTIONS (1)
  - GRAND MAL CONVULSION [None]
